FAERS Safety Report 4906966-5 (Version None)
Quarter: 2006Q1

REPORT INFORMATION
  Report Type: 
  Country: None (occurrence: None)
  Receive Date: 20060207
  Receipt Date: 20060120
  Transmission Date: 20060701
  Serious: Yes (Death)
  Sender: FDA-Public Use
  Company Number: GB200601002465

PATIENT
  Age: 74 Year
  Sex: Male
  Weight: 45.2 kg

DRUGS (8)
  1. ZYPREXA [Suspect]
     Indication: DELUSION
     Dosage: 5 MG, ORAL
     Route: 048
     Dates: start: 20051213, end: 20051224
  2. CYMBALTA [Suspect]
     Indication: DEPRESSION
     Dosage: 30 MG, ORAL
     Route: 048
     Dates: start: 20051205, end: 20051224
  3. SIMVASTATIN [Concomitant]
  4. ALLOPURINOL [Concomitant]
  5. ASPIRIN [Concomitant]
  6. ADALAT [Concomitant]
  7. PANTOPRAZOLE SODIUM [Concomitant]
  8. DICLOFENAC (DICLOFENAC) [Concomitant]

REACTIONS (1)
  - PANCYTOPENIA [None]
